FAERS Safety Report 5608691-4 (Version None)
Quarter: 2008Q1

REPORT INFORMATION
  Report Type: 
  Country: None (occurrence: None)
  Receive Date: 20080131
  Receipt Date: 20080122
  Transmission Date: 20080703
  Serious: Yes (Death, Hospitalization)
  Sender: FDA-Public Use
  Company Number: US-PFIZER INC-2007067218

PATIENT
  Sex: Male
  Weight: 96.6 kg

DRUGS (8)
  1. SUTENT [Suspect]
     Indication: SYNOVIAL SARCOMA
     Route: 048
     Dates: start: 20070806, end: 20070812
  2. HYDROCHLOROTHIAZIDE [Concomitant]
  3. KLOR-CON [Concomitant]
     Dates: start: 20070108
  4. ZOFRAN [Concomitant]
     Dates: start: 20070606, end: 20070810
  5. COMPAZINE [Concomitant]
     Dates: start: 20070806
  6. DECADRON [Concomitant]
     Dates: start: 20061113
  7. METHADONE HCL [Concomitant]
     Dates: start: 20070806
  8. SENNA [Concomitant]
     Dates: start: 20070806

REACTIONS (7)
  - BRAIN OEDEMA [None]
  - CHILLS [None]
  - COUGH [None]
  - DEATH [None]
  - PULMONARY EMBOLISM [None]
  - PYREXIA [None]
  - TUMOUR NECROSIS [None]
